FAERS Safety Report 10543885 (Version 2)
Quarter: 2014Q4

REPORT INFORMATION
  Report Type: Spontaneous
  Country: US (occurrence: None)
  Receive Date: 20141010
  Receipt Date: 20141205
  Transmission Date: 20150529
  Serious: No
  Sender: FDA-Public Use
  Company Number: 163-POMAL-14074688

PATIENT
  Age: 88 Year
  Sex: Male
  Weight: 91.63 kg

DRUGS (2)
  1. POMALYST [Suspect]
     Active Substance: POMALIDOMIDE
     Indication: PLASMA CELL MYELOMA
     Dosage: 21 IN 21 D
     Route: 048
     Dates: start: 20140521, end: 2014
  2. NYSTATIN (NYSTATIN) [Concomitant]
     Active Substance: NYSTATIN

REACTIONS (4)
  - Balance disorder [None]
  - Fungal skin infection [None]
  - Disturbance in attention [None]
  - Fatigue [None]

NARRATIVE: CASE EVENT DATE: 2014
